FAERS Safety Report 14165128 (Version 2)
Quarter: 2018Q1

REPORT INFORMATION
  Report Type: Report from Study
  Country: US (occurrence: US)
  Receive Date: 20171107
  Receipt Date: 20180119
  Transmission Date: 20180508
  Serious: Yes (Other)
  Sender: FDA-Public Use
  Company Number: US-ASTELLAS-2017US044948

PATIENT
  Sex: Female

DRUGS (3)
  1. ISAVUCONAZOLE [Suspect]
     Active Substance: ISAVUCONAZOLE
     Indication: BONE MARROW TRANSPLANT
     Route: 048
     Dates: start: 20170705
  2. ISAVUCONAZOLE [Suspect]
     Active Substance: ISAVUCONAZOLE
     Indication: IMMUNODEFICIENCY
  3. ISAVUCONAZOLE [Suspect]
     Active Substance: ISAVUCONAZOLE
     Indication: FUNGAL INFECTION

REACTIONS (2)
  - Bone marrow disorder [Unknown]
  - Off label use [Unknown]
